FAERS Safety Report 24243377 (Version 1)
Quarter: 2024Q3

REPORT INFORMATION
  Report Type: Spontaneous
  Country: DE (occurrence: DE)
  Receive Date: 20240823
  Receipt Date: 20240823
  Transmission Date: 20241017
  Serious: Yes (Congenital Anomaly)
  Sender: TEVA
  Company Number: DE-EMBRYOTOX-202302242

PATIENT
  Sex: Female
  Weight: 2.5 kg

DRUGS (8)
  1. ALBUTEROL [Suspect]
     Active Substance: ALBUTEROL
     Indication: Cystic fibrosis
     Dosage: 11 [DROPS/DAY]
     Route: 064
     Dates: start: 20230130, end: 20231008
  2. ACTRAPID [Concomitant]
     Active Substance: INSULIN HUMAN
     Indication: Gestational diabetes
     Dosage: TIME INTERVAL: AS NECESSARY: TAKEN AS NEEDED, 100 I.E./ML
     Route: 064
     Dates: start: 20230710, end: 20231008
  3. PANCRELIPASE [Concomitant]
     Active Substance: PANCRELIPASE\PANCRELIPASE AMYLASE\PANCRELIPASE LIPASE\PANCRELIPASE PROTEASE
     Indication: Cystic fibrosis
     Dosage: 375000 [E./D]/ 12-15 TABLETS/D = 300,000 - 375,000 UNITS/D
     Route: 064
     Dates: start: 20230130, end: 20231008
  4. CIMZIA [Concomitant]
     Active Substance: CERTOLIZUMAB PEGOL
     Indication: Rheumatoid arthritis
     Dosage: 200 [MG/DAY (EVERY 2 WEEKS)]/ EVERY 2 WEEKS
     Route: 064
     Dates: start: 20230130, end: 20230304
  5. ELEXACAFTOR\IVACAFTOR\TEZACAFTOR [Suspect]
     Active Substance: ELEXACAFTOR\IVACAFTOR\TEZACAFTOR
     Indication: Cystic fibrosis
     Dosage: UNTIL GW 4+3, THEN PAUSED, RESTART FROM GW 6+5 UNTIL GW 22: 1 TABL/D, THEN 2 TABL/D, 75MG/50MG/100MG
     Route: 064
     Dates: start: 20230130, end: 20231008
  6. BOOSTRIX [Concomitant]
     Active Substance: TETANUS TOXOID, REDUCED DIPHTHERIA TOXOID AND ACELLULAR PERTUSSIS VACCINE, ADSORBED ANTIGENS
     Indication: Immunisation
     Route: 064
     Dates: start: 20230921, end: 20230921
  7. CEFUROXIME [Concomitant]
     Active Substance: CEFUROXIME
     Indication: Infection
     Dosage: 1000 [MG/DAY]
     Route: 064
     Dates: start: 20230722, end: 20230805
  8. Mucoclear [Concomitant]
     Indication: Cystic fibrosis
     Dosage: MORNING + EVENING: 4 ML 6% AND 2.5 ML 0.9%
     Route: 064
     Dates: start: 20230130, end: 20231008

REACTIONS (2)
  - Atrial septal defect [Not Recovered/Not Resolved]
  - Foetal exposure during pregnancy [Unknown]
